FAERS Safety Report 4582388-4 (Version None)
Quarter: 2005Q1

REPORT INFORMATION
  Report Type: 
  Country: None (occurrence: None)
  Receive Date: 20050119
  Receipt Date: 20040122
  Transmission Date: 20050727
  Serious: Yes (Death, Hospitalization)
  Sender: FDA-Public Use
  Company Number: US-JNJFOC-20040104153

PATIENT
  Age: 80 Year
  Sex: Male

DRUGS (3)
  1. DOXIL [Suspect]
     Indication: MULTIPLE MYELOMA
     Dosage: 40 MG, 1 IN 3 WEEK, INTRAVENOUS
     Route: 042
     Dates: start: 20030217, end: 20030217
  2. VINCRISTINE [Suspect]
     Indication: MULTIPLE MYELOMA
     Dosage: , 1 IN 3 WEEK, INTRAVENOUS
     Route: 042
     Dates: start: 20030217, end: 20030217
  3. PREDNISONE [Suspect]
     Indication: MULTIPLE MYELOMA
     Dosage: ,  1 IN 3 WEEK
     Dates: start: 20030217, end: 20030217

REACTIONS (2)
  - MALIGNANT NEOPLASM PROGRESSION [None]
  - PAIN [None]
